FAERS Safety Report 7092457-5 (Version None)
Quarter: 2010Q4

REPORT INFORMATION
  Report Type: 
  Country: None (occurrence: None)
  Receive Date: 20101108
  Receipt Date: 20101108
  Transmission Date: 20110411
  Serious: No
  Sender: FDA-Public Use
  Company Number: None

PATIENT
  Sex: Male
  Weight: 77.5651 kg

DRUGS (1)
  1. ALLOPURINOL [Suspect]

REACTIONS (1)
  - DIARRHOEA [None]
